FAERS Safety Report 10411693 (Version 1)
Quarter: 2014Q3

REPORT INFORMATION
  Report Type: Spontaneous
  Country: HK (occurrence: HK)
  Receive Date: 20140827
  Receipt Date: 20140827
  Transmission Date: 20150326
  Serious: Yes (Hospitalization, Other)
  Sender: FDA-Public Use
  Company Number: HK-009507513-1408HKG014389

PATIENT

DRUGS (1)
  1. VICTRELIS [Suspect]
     Active Substance: BOCEPREVIR
     Route: 048

REACTIONS (2)
  - Neurotoxicity [Unknown]
  - Adverse event [Unknown]
